FAERS Safety Report 4623074-1 (Version None)
Quarter: 2005Q1

REPORT INFORMATION
  Report Type: 
  Country: None (occurrence: None)
  Receive Date: 20050107
  Receipt Date: 20041008
  Transmission Date: 20050727
  Serious: No
  Sender: FDA-Public Use
  Company Number: 235119K04USA

PATIENT
  Age: 42 Year
  Sex: Female

DRUGS (1)
  1. REBIF [Suspect]
     Indication: MULTIPLE SCLEROSIS
     Dosage: 44 MCG, 3 IN 1 WEEKS, SUBCUTANEOUS/ NASAL
     Route: 058
     Dates: start: 20040101

REACTIONS (9)
  - CHEST DISCOMFORT [None]
  - CHEST PAIN [None]
  - DEPRESSION [None]
  - FEELING ABNORMAL [None]
  - INJECTION [None]
  - INJECTION SITE ERYTHEMA [None]
  - INJECTION SITE REACTION [None]
  - PRURITUS [None]
  - RASH [None]
